FAERS Safety Report 7386151-0 (Version None)
Quarter: 2011Q1

REPORT INFORMATION
  Report Type: 
  Country: None (occurrence: None)
  Receive Date: 20110323
  Receipt Date: 20110314
  Transmission Date: 20110831
  Serious: Yes (Hospitalization)
  Sender: FDA-Public Use
  Company Number: 2011SP011956

PATIENT
  Sex: Male

DRUGS (3)
  1. PRAVASTATIN [Concomitant]
  2. DIPROSONE [Suspect]
     Indication: PSORIASIS
     Dosage: CUT
     Route: 003
  3. ALTEIS [Concomitant]

REACTIONS (1)
  - ASTHENIA [None]
